FAERS Safety Report 4684576-5 (Version None)
Quarter: 2005Q2

REPORT INFORMATION
  Report Type: 
  Country: None (occurrence: None)
  Receive Date: 20050603
  Receipt Date: 20050517
  Transmission Date: 20051028
  Serious: Yes (Death)
  Sender: FDA-Public Use
  Company Number: 03-NIP00123

PATIENT
  Age: 47 Year
  Sex: Male

DRUGS (1)
  1. NIPENT [Suspect]
     Indication: GRAFT VERSUS HOST DISEASE
     Dosage: 2 MG/M.2 1X PER 1 DAY, INTRAVENOUS
     Route: 042
     Dates: start: 20000819, end: 20000821

REACTIONS (2)
  - HEPATIC FAILURE [None]
  - SEPTIC SHOCK [None]
